FAERS Safety Report 5473633-1 (Version None)
Quarter: 2007Q4

REPORT INFORMATION
  Report Type: 
  Country: None (occurrence: None)
  Receive Date: 20071001
  Receipt Date: 20070919
  Transmission Date: 20080405
  Serious: Yes (Hospitalization, Other)
  Sender: FDA-Public Use
  Company Number: CZ-PFIZER INC-2007076075

PATIENT
  Age: 42 Year
  Sex: Male

DRUGS (8)
  1. GABAPENTIN [Suspect]
     Indication: EPILEPSY
     Route: 048
  2. LYRICA [Suspect]
     Indication: EPILEPSY
     Route: 048
  3. NEUROTOP [Suspect]
     Indication: EPILEPSY
     Route: 048
  4. SANEPIL [Concomitant]
  5. EVERIDEN [Concomitant]
  6. EPILAN [Concomitant]
  7. LAMICTAL [Concomitant]
  8. VALPROATE SODIUM [Concomitant]
     Indication: EPILEPSY
     Route: 048

REACTIONS (4)
  - DRUG INEFFECTIVE [None]
  - EPILEPSY [None]
  - INSOMNIA [None]
  - TREATMENT NONCOMPLIANCE [None]
